FAERS Safety Report 18701900 (Version 2)
Quarter: 2021Q1

REPORT INFORMATION
  Report Type: Spontaneous
  Country: US (occurrence: US)
  Receive Date: 20210105
  Receipt Date: 20210128
  Transmission Date: 20210419
  Serious: Yes (Hospitalization, Other)
  Sender: FDA-Public Use
  Company Number: US-009507513-2012USA012724

PATIENT
  Age: 62 Year
  Sex: Male

DRUGS (3)
  1. IPILIMUMAB [Suspect]
     Active Substance: IPILIMUMAB
     Indication: METASTATIC MALIGNANT MELANOMA
     Dosage: UNK; THREE CYCLES
  2. NIVOLUMAB [Suspect]
     Active Substance: NIVOLUMAB
     Indication: METASTATIC MALIGNANT MELANOMA
     Dosage: UNK; THREE CYCLES
  3. KEYTRUDA [Suspect]
     Active Substance: PEMBROLIZUMAB
     Indication: METASTATIC MALIGNANT MELANOMA
     Dosage: UNK; TWO CYCLES
     Dates: start: 201911

REACTIONS (4)
  - Granuloma [Unknown]
  - Sarcoidosis [Unknown]
  - Tubulointerstitial nephritis [Unknown]
  - Cardiac sarcoidosis [Unknown]

NARRATIVE: CASE EVENT DATE: 202003
